FAERS Safety Report 14514389 (Version 1)
Quarter: 2018Q1

REPORT INFORMATION
  Report Type: Spontaneous
  Country: US (occurrence: US)
  Receive Date: 20180209
  Receipt Date: 20180209
  Transmission Date: 20180509
  Serious: Yes (Other)
  Sender: FDA-Public Use
  Company Number: US-BAUSCH-BL-2018-002611

PATIENT
  Age: 45 Year
  Sex: Female

DRUGS (2)
  1. AMOBARBITAL [Suspect]
     Active Substance: AMOBARBITAL
     Dosage: INJECTED IN RIGHT INTERNAL CAROTID ARTERY
     Route: 013
  2. AMOBARBITAL [Suspect]
     Active Substance: AMOBARBITAL
     Indication: WADA TEST
     Dosage: INJECTED IN LEFT INTERNAL CAROTID ARTERY
     Route: 013

REACTIONS (1)
  - Seizure [Recovered/Resolved]
